FAERS Safety Report 8605421-9 (Version None)
Quarter: 2012Q3

REPORT INFORMATION
  Report Type: 
  Country: None (occurrence: None)
  Receive Date: 20120820
  Receipt Date: 20120808
  Transmission Date: 20120928
  Serious: Yes (Hospitalization)
  Sender: FDA-Public Use
  Company Number: CH-JNJFOC-20120809240

PATIENT
  Age: 63 Year
  Sex: Male
  Weight: 70 kg

DRUGS (4)
  1. SPIRIVA [Concomitant]
  2. METFORMIN HCL [Concomitant]
     Route: 048
  3. SOTALOL HCL [Concomitant]
     Route: 048
  4. XARELTO [Suspect]
     Indication: CEREBRAL INFARCTION
     Route: 048
     Dates: start: 20120626, end: 20120626

REACTIONS (3)
  - CEREBRAL HAEMORRHAGE [None]
  - HEADACHE [None]
  - APHASIA [None]
